FAERS Safety Report 17840554 (Version 1)
Quarter: 2020Q2

REPORT INFORMATION
  Report Type: Spontaneous
  Country: US (occurrence: US)
  Receive Date: 20200529
  Receipt Date: 20200529
  Transmission Date: 20200714
  Serious: Yes (Other)
  Sender: FDA-Public Use
  Company Number: US-PFIZER INC-2020209975

PATIENT
  Age: 89 Year
  Sex: Female

DRUGS (2)
  1. NORVASC [Suspect]
     Active Substance: AMLODIPINE BESYLATE
     Indication: BLOOD PRESSURE ABNORMAL
     Dosage: 10 MG, AT NIGHT
     Route: 048
  2. NORVASC [Suspect]
     Active Substance: AMLODIPINE BESYLATE
     Dosage: UNK, TWICE A DAY
     Route: 048

REACTIONS (14)
  - Back pain [Unknown]
  - Asthma [Unknown]
  - Dysgraphia [Unknown]
  - Off label use [Unknown]
  - Malaise [Unknown]
  - Hypoaesthesia [Unknown]
  - Chronic obstructive pulmonary disease [Unknown]
  - Fall [Unknown]
  - Muscular weakness [Unknown]
  - Movement disorder [Unknown]
  - Nervousness [Unknown]
  - Neuropathy peripheral [Unknown]
  - Feeling of despair [Unknown]
  - Gait inability [Unknown]

NARRATIVE: CASE EVENT DATE: 2020
